FAERS Safety Report 18388521 (Version 1)
Quarter: 2020Q4

REPORT INFORMATION
  Report Type: Spontaneous
  Country: JP (occurrence: JP)
  Receive Date: 20201015
  Receipt Date: 20201015
  Transmission Date: 20210114
  Serious: Yes (Death)
  Sender: FDA-Public Use
  Company Number: JP-JNJFOC-A-CH2019-187822

PATIENT
  Age: 62 Year
  Sex: Female
  Weight: 42.1 kg

DRUGS (24)
  1. NEXIUM [Concomitant]
     Active Substance: ESOMEPRAZOLE MAGNESIUM
     Dosage: 20 MG, QD
     Dates: start: 20180714, end: 20180824
  2. UREPEARL [Concomitant]
     Active Substance: UREA
     Indication: DRY SKIN
     Dosage: 20 MG, QD
     Dates: start: 20181003, end: 20181003
  3. PURSENNID [Concomitant]
     Indication: CONSTIPATION
     Dosage: 12 MG, QD
     Dates: start: 20181030, end: 20181126
  4. SLOW K [Concomitant]
     Active Substance: POTASSIUM CHLORIDE
     Indication: HYPOKALAEMIA
     Dosage: 2400 MG, QD
     Dates: start: 20180709, end: 20180713
  5. SAWACILLIN [Concomitant]
     Active Substance: AMOXICILLIN
     Indication: NASOPHARYNGITIS
     Dosage: 750 MG, QD
     Dates: start: 20180804, end: 20180806
  6. ZYLORIC [Concomitant]
     Active Substance: ALLOPURINOL
     Indication: HYPERURICAEMIA
     Dosage: 100 MG, QD
     Dates: start: 20181003, end: 20190208
  7. REVATIO [Concomitant]
     Active Substance: SILDENAFIL CITRATE
     Indication: PULMONARY ARTERIAL HYPERTENSION
     Dosage: 60 MG, QD
     Dates: start: 20180708, end: 20190208
  8. PRIMPERAN [Concomitant]
     Active Substance: METOCLOPRAMIDE HYDROCHLORIDE
     Indication: NAUSEA
     Dosage: 5 MG, QD
     Dates: start: 20181030, end: 20181108
  9. MAGMITT [Concomitant]
     Active Substance: MAGNESIUM OXIDE
     Indication: CONSTIPATION
     Dosage: 990 MG, QD
     Dates: start: 20181030, end: 20181126
  10. VOLIBRIS [Concomitant]
     Active Substance: AMBRISENTAN
     Indication: PULMONARY ARTERIAL HYPERTENSION
     Dosage: 5 MG, QD
     Dates: start: 20180708, end: 20180716
  11. SAMSCA [Concomitant]
     Active Substance: TOLVAPTAN
     Dosage: 3.75 MG, QD
     Dates: start: 20180709, end: 20190208
  12. ALDACTONE A [Concomitant]
     Active Substance: SPIRONOLACTONE
     Dosage: 25 MG, QD
     Dates: start: 20180711, end: 20180824
  13. BIO-THREE [Concomitant]
     Active Substance: HERBALS
     Indication: IRRITABLE BOWEL SYNDROME
     Dosage: 2 DF, QD
     Dates: start: 20180822, end: 20181106
  14. TAKECAB [Concomitant]
     Active Substance: VONOPRAZAN FUMARATE
     Dosage: 10 MG, QD
     Dates: start: 20181018, end: 20190208
  15. POTASSIUM CHLORIDE. [Concomitant]
     Active Substance: POTASSIUM CHLORIDE
     Indication: HYPOKALAEMIA
     Dosage: 3 G, QD
     Dates: start: 20181124, end: 20181126
  16. UPTRAVI [Suspect]
     Active Substance: SELEXIPAG
     Indication: PULMONARY ARTERIAL HYPERTENSION
     Dosage: 0.4 MG, 0.2 MG, QD
     Route: 048
     Dates: start: 20180822, end: 20181002
  17. UPTRAVI [Suspect]
     Active Substance: SELEXIPAG
     Dosage: 0.2 MG, BID
     Route: 048
     Dates: start: 20180708, end: 20180821
  18. LOXONIN [Concomitant]
     Active Substance: LOXOPROFEN SODIUM
     Indication: NASOPHARYNGITIS
     Dosage: 180 MG, QD
     Dates: start: 20180804, end: 20180808
  19. SELBEX [Concomitant]
     Active Substance: TEPRENONE
     Indication: DECREASED APPETITE
     Dosage: 150 MG, QD
     Dates: start: 20180822, end: 20181106
  20. GASMOTIN [Concomitant]
     Active Substance: MOSAPRIDE CITRATE
     Indication: ABDOMINAL DISTENSION
     Dosage: 15 MG, QD
     Dates: start: 20181018, end: 20181219
  21. UPTRAVI [Suspect]
     Active Substance: SELEXIPAG
     Dosage: 0.2 MG, BID
     Route: 048
     Dates: start: 20181003, end: 20190208
  22. AZUNOL [Concomitant]
     Indication: DRY SKIN
     Dosage: 20 MG, QD
     Dates: start: 20181206, end: 20181206
  23. LASIX [Concomitant]
     Active Substance: FUROSEMIDE
     Dosage: 20 MG, QD
     Dates: start: 20180712, end: 20190208
  24. VENTAVIS [Concomitant]
     Active Substance: ILOPROST
     Indication: PULMONARY ARTERIAL HYPERTENSION
     Dosage: 30 MCG, QD
     Dates: start: 20181120, end: 20181219

REACTIONS (1)
  - Respiratory failure [Fatal]

NARRATIVE: CASE EVENT DATE: 20190302
